FAERS Safety Report 9577800 (Version 1)
Quarter: 2013Q4

REPORT INFORMATION
  Report Type: Spontaneous
  Country: US (occurrence: US)
  Receive Date: 20131001
  Receipt Date: 20131001
  Transmission Date: 20140711
  Serious: No
  Sender: FDA-Public Use
  Company Number: US-AMGEN-USASP2013010050

PATIENT
  Sex: Female
  Weight: 49.89 kg

DRUGS (7)
  1. ENBREL [Suspect]
     Indication: RHEUMATOID ARTHRITIS
     Dosage: 50 MG/ML, QWK
     Route: 058
  2. PREDNISONE [Concomitant]
     Dosage: 1 MG, UNK
  3. DOXYCYCLINE [Concomitant]
     Dosage: 20 MG, UNK
  4. PRAVASTATIN [Concomitant]
     Dosage: 20 MG, UNK
  5. VITAMIN C                          /00008001/ [Concomitant]
     Dosage: 100 MG, UNK
  6. VITAMIN B COMPLEX [Concomitant]
     Dosage: UNK
  7. CALCIUM + VITAMIN D                /01483701/ [Concomitant]
     Dosage: UNK

REACTIONS (1)
  - Therapeutic response decreased [Unknown]
